FAERS Safety Report 4576851-X (Version None)
Quarter: 2005Q1

REPORT INFORMATION
  Report Type: 
  Country: None (occurrence: None)
  Receive Date: 20050207
  Receipt Date: 20050124
  Transmission Date: 20050727
  Serious: Yes (Hospitalization)
  Sender: FDA-Public Use
  Company Number: 201809

PATIENT
  Age: 60 Year
  Sex: Male

DRUGS (5)
  1. AVONEX [Suspect]
     Indication: MULTIPLE SCLEROSIS
     Dosage: 30 UG;QW;IM
     Route: 030
     Dates: start: 20010501
  2. AVONEX [Suspect]
     Indication: MULTIPLE SCLEROSIS
     Dosage: 30 UG;QW;IM
     Route: 030
     Dates: end: 20040101
  3. AVONEX [Suspect]
     Indication: MULTIPLE SCLEROSIS
     Dosage: 30 UG;QW;IM
     Route: 030
     Dates: start: 20040101
  4. ACOTS [Concomitant]
  5. GLUCOPHAGE [Concomitant]

REACTIONS (15)
  - ABSCESS [None]
  - APPENDICITIS PERFORATED [None]
  - ASCITES [None]
  - ASTHENIA [None]
  - CATHETER SEPSIS [None]
  - CHOLECYSTITIS ACUTE [None]
  - FISTULA [None]
  - GASTRIC DISORDER [None]
  - INTESTINAL PERFORATION [None]
  - OESOPHAGITIS ULCERATIVE [None]
  - PROCEDURAL COMPLICATION [None]
  - SMALL INTESTINAL PERFORATION [None]
  - THERAPY NON-RESPONDER [None]
  - TREATMENT NONCOMPLIANCE [None]
  - UPPER GASTROINTESTINAL HAEMORRHAGE [None]
